FAERS Safety Report 4654655-7 (Version None)
Quarter: 2005Q2

REPORT INFORMATION
  Report Type: 
  Country: None (occurrence: None)
  Receive Date: 20050506
  Receipt Date: 20050420
  Transmission Date: 20051028
  Serious: Yes (Death)
  Sender: FDA-Public Use
  Company Number: US-BRISTOL-MYERS SQUIBB COMPANY-12940821

PATIENT
  Age: 68 Year
  Sex: Male
  Weight: 101 kg

DRUGS (5)
  1. CETUXIMAB [Suspect]
     Indication: NON-SMALL CELL LUNG CANCER
     Dosage: FIRST INFUSION (900 CC), ONLY REC'D 10 CC.
     Route: 042
     Dates: start: 20050420, end: 20050420
  2. BENADRYL [Concomitant]
     Route: 042
     Dates: start: 20050420
  3. TOPROL-XL [Concomitant]
  4. ADVAIR DISKUS 100/50 [Concomitant]
  5. ALBUTEROL [Concomitant]

REACTIONS (2)
  - ANAPHYLACTIC REACTION [None]
  - CARDIO-RESPIRATORY ARREST [None]
